FAERS Safety Report 4451224-9 (Version None)
Quarter: 2004Q3

REPORT INFORMATION
  Report Type: 
  Country: None (occurrence: None)
  Receive Date: 20040915
  Receipt Date: 20040915
  Transmission Date: 20050211
  Serious: Yes (Hospitalization)
  Sender: FDA-Public Use
  Company Number: None

PATIENT
  Age: 5 Year
  Sex: Female
  Weight: 17.7 kg

DRUGS (4)
  1. DEXAMETHASONE [Suspect]
     Indication: ACUTE LYMPHOCYTIC LEUKAEMIA
     Dosage: 2 MG BID PO
     Route: 048
     Dates: start: 20040606, end: 20040703
  2. METHOTREXATE [Concomitant]
  3. VINCRISTINE [Concomitant]
  4. ASPARIGENASE [Concomitant]

REACTIONS (9)
  - CELLULITIS [None]
  - CONTUSION [None]
  - FUNGAL SEPSIS [None]
  - FUNGUS CULTURE POSITIVE [None]
  - NEUROSIS [None]
  - NODULE [None]
  - SINUS DISORDER [None]
  - SINUSITIS [None]
  - SKIN LESION [None]
